FAERS Safety Report 5002041-2 (Version None)
Quarter: 2006Q2

REPORT INFORMATION
  Report Type: 
  Country: None (occurrence: None)
  Receive Date: 20060515
  Receipt Date: 20051216
  Transmission Date: 20061013
  Serious: Yes (Hospitalization)
  Sender: FDA-Public Use
  Company Number: US-MERCK-0512USA02976

PATIENT
  Age: 54 Year
  Sex: Male
  Weight: 125 kg

DRUGS (22)
  1. VIOXX [Suspect]
     Indication: ARTHRITIS
     Route: 048
     Dates: start: 19990101, end: 20040901
  2. VIOXX [Suspect]
     Route: 048
     Dates: start: 19990101, end: 20040901
  3. LIPITOR [Concomitant]
     Route: 065
     Dates: start: 19950101
  4. BECONASE [Concomitant]
     Route: 065
  5. WELLBUTRIN [Concomitant]
     Route: 065
     Dates: start: 20020101
  6. MONOPRIL [Concomitant]
     Route: 065
     Dates: start: 19900101, end: 20030101
  7. AUGMENTIN '125' [Concomitant]
     Route: 065
  8. AMANTADINE HYDROCHLORIDE [Concomitant]
     Route: 065
  9. IBUPROFEN [Concomitant]
     Route: 065
     Dates: start: 20021101, end: 20021201
  10. IBUPROFEN [Concomitant]
     Route: 065
     Dates: start: 20010301, end: 20010401
  11. OMNICEF [Concomitant]
     Route: 065
  12. ZITHROMAX [Concomitant]
     Route: 065
  13. RHINOCORT [Concomitant]
     Route: 065
  14. TYLENOL (CAPLET) [Concomitant]
     Route: 065
     Dates: start: 20020101
  15. AMOXI/CLAV [Concomitant]
     Route: 065
  16. HC TUSSIVE [Concomitant]
     Route: 065
  17. FAMOTIDINE [Concomitant]
     Route: 065
  18. ZYBAN [Concomitant]
     Route: 065
  19. SEREVENT [Concomitant]
     Route: 065
  20. [THERAPY UNSPECIFIED] [Concomitant]
     Route: 065
  21. LEVAQUIN [Concomitant]
     Route: 065
  22. [THERAPY UNSPECIFIED] [Concomitant]
     Route: 065
     Dates: start: 20040101

REACTIONS (18)
  - ACUTE MYOCARDIAL INFARCTION [None]
  - ARTERIOSCLEROSIS [None]
  - BLOOD TRIGLYCERIDES INCREASED [None]
  - BRONCHITIS [None]
  - CARDIAC DISORDER [None]
  - CELLULITIS [None]
  - CHEST PAIN [None]
  - CORONARY ARTERY DISEASE [None]
  - CORONARY ARTERY OCCLUSION [None]
  - DEPRESSION [None]
  - DIABETES MELLITUS [None]
  - DYSPNOEA [None]
  - EMOTIONAL DISTRESS [None]
  - HAEMATOCHEZIA [None]
  - NOCTURIA [None]
  - RECTAL POLYP [None]
  - SHOULDER PAIN [None]
  - UPPER RESPIRATORY TRACT INFECTION [None]
